FAERS Safety Report 6481560-6 (Version None)
Quarter: 2009Q4

REPORT INFORMATION
  Report Type: 
  Country: None (occurrence: None)
  Receive Date: 20091208
  Receipt Date: 20091201
  Transmission Date: 20100525
  Serious: Yes (Other)
  Sender: FDA-Public Use
  Company Number: US-SANOFI-AVENTIS-2009SA000758

PATIENT
  Age: 80 Year
  Sex: Female
  Weight: 66.8 kg

DRUGS (6)
  1. MULTAQ [Suspect]
     Indication: ATRIAL FIBRILLATION
     Route: 048
     Dates: start: 20091002
  2. PRAVASTATIN [Concomitant]
     Route: 048
  3. TOPROL-XL [Concomitant]
     Indication: ARTERIOSCLEROSIS CORONARY ARTERY
  4. OMEPRAZOLE [Concomitant]
  5. COUMADIN [Concomitant]
     Indication: ATRIAL FIBRILLATION
  6. ISOSORBIDE MONONITRATE [Concomitant]
     Indication: ARTERIOSCLEROSIS CORONARY ARTERY

REACTIONS (1)
  - INTERNATIONAL NORMALISED RATIO INCREASED [None]
